FAERS Safety Report 18415553 (Version 1)
Quarter: 2020Q4

REPORT INFORMATION
  Report Type: Spontaneous
  Country: US (occurrence: US)
  Receive Date: 20201022
  Receipt Date: 20201022
  Transmission Date: 20210114
  Serious: Yes (Life-Threatening)
  Sender: FDA-Public Use
  Company Number: None

PATIENT
  Age: 63 Year
  Sex: Male

DRUGS (1)
  1. DEXMEDETOMIDINE (DEXMEDETOMIDINE 4MCG/ML 0.9% NACL INJ, BAG,100ML [Suspect]
     Active Substance: DEXMEDETOMIDINE
     Dosage: ?          OTHER STRENGTH:4MCG/ML/0.9%;?
     Dates: start: 20200913

REACTIONS (3)
  - Bradycardia [None]
  - Sinus arrest [None]
  - Cardiac arrest [None]

NARRATIVE: CASE EVENT DATE: 20200913
